FAERS Safety Report 21290424 (Version 6)
Quarter: 2023Q1

REPORT INFORMATION
  Report Type: Spontaneous
  Country: US (occurrence: US)
  Receive Date: 20220902
  Receipt Date: 20230317
  Transmission Date: 20230418
  Serious: Yes (Hospitalization, Other)
  Sender: FDA-Public Use
  Company Number: US-NOVARTISTESTPH-NVSC2022US198587

PATIENT
  Age: 75 Year
  Sex: Female
  Weight: 55.338 kg

DRUGS (1)
  1. LUTATHERA [Suspect]
     Active Substance: LUTETIUM OXODOTREOTIDE LU-177
     Indication: Neuroendocrine tumour
     Dosage: UNK (RECEIVED FIRST DOSE, 3 OF 4, LIQUID, PICC))
     Route: 065
     Dates: start: 20220809, end: 20221206

REACTIONS (3)
  - Pneumonia [Unknown]
  - Pneumonia [Recovered/Resolved]
  - Ill-defined disorder [Unknown]

NARRATIVE: CASE EVENT DATE: 20221207
